FAERS Safety Report 8582457 (Version 3)
Quarter: 2014Q1

REPORT INFORMATION
  Report Type: Spontaneous
  Country: US (occurrence: None)
  Receive Date: 20120323
  Receipt Date: 20140306
  Transmission Date: 20141002
  Serious: Yes (Disabling)
  Sender: FDA-Public Use
  Company Number: 163-21880-11040904

PATIENT
  Age: 82 Year
  Sex: Female

DRUGS (17)
  1. REVLIMID [Suspect]
     Indication: PLASMA CELL MYELOMA
     Dosage: 10 MG, 14 IN 14 D, PO
     Route: 048
     Dates: start: 20110328
  2. LASIX (FUROSEMIDE) (UNKNOWN) [Concomitant]
  3. BENICAR (OLMESARTAN MEDOXOMIL) (UNKNOWN) [Concomitant]
  4. VITAMIN B12 (CYANOCOBALAMIN) (UNKNOWN) [Concomitant]
  5. OXYCONTIN (OXYCODONE HYDROCHLORIDE) (UNKNOWN) [Concomitant]
  6. AMLODIPINE BESYLATE (AMLODIPINE BESILATE) (UNKNOWN) [Concomitant]
  7. LUMIGAN (BIMATOPROST) (UNKNOWN) [Concomitant]
  8. TIMOLOL MALEATE(TIMOLOL MALEATE) (UNKNOWN) [Concomitant]
  9. SIMETHICONE-80 (DIMETICONE, ACTIVATED) (UNKNOWN) [Concomitant]
  10. VITAMIN B COMPLEX (B-KOMPLEX ^LECIVA^) (UNKNOWN) [Concomitant]
  11. MAGNESIUM OXIDE (MAGNESIUM OXIDE) (UNKNOWN) [Concomitant]
  12. PROTONIX (UNKNOWN) [Concomitant]
  13. LORAZEPAM (LORAZEPAM) (UNKNOWN) (LORAZEPAM) [Concomitant]
  14. ASA (ACETYLSALICYLIC ACID) (UNKNOWN) [Concomitant]
  15. DEXAMETHASONE (DEXAMETHASONE) (UNKNOWN) [Concomitant]
  16. VITAMIN C (ASCORBIC ACID) (UNKNOWN) [Concomitant]
  17. COSOPT (COSOPT) (UNKNOWN) [Concomitant]

REACTIONS (4)
  - Neuropathy peripheral [None]
  - Nausea [None]
  - Diarrhoea [None]
  - Feeling jittery [None]
